FAERS Safety Report 7816623-3 (Version None)
Quarter: 2011Q4

REPORT INFORMATION
  Report Type: 
  Country: None (occurrence: None)
  Receive Date: 20111017
  Receipt Date: 20111012
  Transmission Date: 20120403
  Serious: No
  Sender: FDA-Public Use
  Company Number: US-TEVA-305006USA

PATIENT
  Sex: Female
  Weight: 64.014 kg

DRUGS (1)
  1. PLAN B ONE-STEP [Suspect]
     Indication: POST COITAL CONTRACEPTION
     Dosage: 1.5 MILLIGRAM;
     Route: 048
     Dates: start: 20111009, end: 20111009

REACTIONS (3)
  - PELVIC PAIN [None]
  - BACK PAIN [None]
  - POLLAKIURIA [None]
